FAERS Safety Report 8967047 (Version 4)
Quarter: 2014Q1

REPORT INFORMATION
  Report Type: Spontaneous
  Country: US (occurrence: US)
  Receive Date: 20121214
  Receipt Date: 20140306
  Transmission Date: 20141002
  Serious: Yes (Life-Threatening, Hospitalization, Disabling, Other)
  Sender: FDA-Public Use
  Company Number: US-INCYTE CORPORATION-2012IN002555

PATIENT
  Age: 66 Year
  Sex: Male
  Weight: 77.09 kg

DRUGS (1)
  1. JAKAFI [Suspect]
     Indication: MYELOPROLIFERATIVE DISORDER
     Dosage: UNSPECIFIED
     Route: 048
     Dates: start: 20121105, end: 20121109

REACTIONS (8)
  - Ophthalmic herpes simplex [Recovered/Resolved with Sequelae]
  - Blindness [Not Recovered/Not Resolved]
  - Herpes simplex [Recovered/Resolved]
  - Oedema [Unknown]
  - Epidermal necrosis [Unknown]
  - Angioedema [Unknown]
  - Nasal mucosal disorder [Unknown]
  - Bacterial infection [Unknown]
